FAERS Safety Report 13529011 (Version 1)
Quarter: 2017Q2

REPORT INFORMATION
  Report Type: Spontaneous
  Country: CA (occurrence: CA)
  Receive Date: 20170509
  Receipt Date: 20170509
  Transmission Date: 20170830
  Serious: Yes (Death, Hospitalization, Other)
  Sender: FDA-Public Use
  Company Number: CA-BRISTOL-MYERS SQUIBB COMPANY-BMS-2017-026297

PATIENT
  Sex: Male

DRUGS (2)
  1. ORENCIA [Suspect]
     Active Substance: ABATACEPT
     Indication: PRODUCT USED FOR UNKNOWN INDICATION
     Dosage: UNKNOWN
     Route: 065
     Dates: start: 201601, end: 201609
  2. ORENCIA [Suspect]
     Active Substance: ABATACEPT
     Indication: RHEUMATOID ARTHRITIS
     Route: 042

REACTIONS (9)
  - Neoplasm malignant [Fatal]
  - Biliary drainage [Unknown]
  - Infarction [Unknown]
  - Biliary tract infection [Unknown]
  - Haemorrhage [Unknown]
  - Abscess [Unknown]
  - Therapeutic aspiration [Unknown]
  - Transfusion [Unknown]
  - Cranial nerve infection [Unknown]
